FAERS Safety Report 6597173-1 (Version None)
Quarter: 2010Q1

REPORT INFORMATION
  Report Type: 
  Country: None (occurrence: None)
  Receive Date: 20100212
  Receipt Date: 20100129
  Transmission Date: 20100710
  Serious: Yes (Hospitalization)
  Sender: FDA-Public Use
  Company Number: KV200900826

PATIENT
  Age: 61 Year
  Sex: Female
  Weight: 77.1 kg

DRUGS (30)
  1. MORPHINE SULFATE [Suspect]
     Indication: PAIN
     Dosage: 30 MG, TID, ORAL; 30 MG, BID, ORAL
     Route: 048
     Dates: start: 20060101, end: 20070213
  2. MORPHINE SULFATE [Suspect]
     Indication: PAIN
     Dosage: 30 MG, TID, ORAL; 30 MG, BID, ORAL
     Route: 048
     Dates: start: 20080409, end: 20080814
  3. MORPHINE SULFATE [Suspect]
     Indication: PAIN
     Dosage: 30 MG, TID, ORAL; 30 MG, BID, ORAL
     Route: 048
     Dates: start: 20080531, end: 20080814
  4. MORPHINE SULFATE [Suspect]
     Indication: PAIN
     Dosage: 30 MG, TID, ORAL; 30 MG, BID, ORAL
     Route: 048
     Dates: start: 20080909, end: 20080901
  5. MORPHINE SULFATE [Suspect]
     Indication: PAIN
     Dosage: 100 MG, BID, ORAL
     Route: 048
     Dates: start: 20080401, end: 20080814
  6. MORPHINE SULFATE [Suspect]
     Indication: PAIN
     Dosage: 100 MG, BID, ORAL
     Route: 048
     Dates: start: 20080909, end: 20080901
  7. MORPHINE SULFATE [Suspect]
     Indication: PAIN
     Dosage: 30 MG, BID PRN, ORAL; 30 MG, BID, ORAL
     Route: 048
     Dates: start: 20070507, end: 20070604
  8. MORPHINE SULFATE [Suspect]
     Indication: PAIN
     Dosage: 30 MG, BID PRN, ORAL; 30 MG, BID, ORAL
     Route: 048
     Dates: start: 20080531, end: 20080814
  9. MORPHINE SULFATE [Suspect]
     Indication: PAIN
     Dosage: 30 MG, BID PRN, ORAL; 30 MG, BID, ORAL
     Route: 048
     Dates: start: 20080909, end: 20080901
  10. MORPHINE SULFATE [Suspect]
     Indication: PAIN
     Dosage: 15 MG, BID, ORAL
     Route: 048
     Dates: start: 20060101, end: 20061018
  11. ROXICODONE [Concomitant]
  12. ALBUTEROL /00139501/ (SALBUTAMOL) [Concomitant]
  13. ASTELIN /00884002/ (AZELASTINE HYDROCHLORIDE) [Concomitant]
  14. DIAZEPAM [Concomitant]
  15. FLOVENT [Concomitant]
  16. FLUCONAZOLE [Concomitant]
  17. FUROSEMIDE [Concomitant]
  18. FLUOXETINE [Concomitant]
  19. GABAPENTIN [Concomitant]
  20. IPRATROPIUM BROMIDE [Concomitant]
  21. LANTUS [Concomitant]
  22. REGLAN /00041901/ (METOCLOPRAMIDE) [Concomitant]
  23. RITALIN [Concomitant]
  24. NITROGLYCERIN [Concomitant]
  25. PRILOSEC /00661201/ (OMEPRAZOLE) [Concomitant]
  26. PHENERGAN /00033001/ (PROMETHAZINE) [Concomitant]
  27. ZOCOR [Concomitant]
  28. SPIRONOLACTONE [Concomitant]
  29. TRAZODONE HCL [Concomitant]
  30. TRIAMCINOLONE [Concomitant]

REACTIONS (26)
  - ACCIDENTAL EXPOSURE [None]
  - ACUTE RESPIRATORY FAILURE [None]
  - AGGRESSION [None]
  - AGITATION [None]
  - BLOOD ALCOHOL INCREASED [None]
  - CONSTIPATION [None]
  - CORONARY ARTERY DISEASE [None]
  - DRUG INEFFECTIVE [None]
  - DRUG TOXICITY [None]
  - DYSARTHRIA [None]
  - DYSKINESIA [None]
  - HYPERHIDROSIS [None]
  - HYPOKALAEMIA [None]
  - LETHARGY [None]
  - LOSS OF CONSCIOUSNESS [None]
  - MIOSIS [None]
  - OVERDOSE [None]
  - PALLOR [None]
  - PERIPHERAL COLDNESS [None]
  - PRODUCTIVE COUGH [None]
  - PUPIL FIXED [None]
  - RESPIRATORY DISTRESS [None]
  - SOMNOLENCE [None]
  - TREMOR [None]
  - UNRESPONSIVE TO STIMULI [None]
  - WHEEZING [None]
